FAERS Safety Report 10049978 (Version 2)
Quarter: 2014Q2

REPORT INFORMATION
  Report Type: Report from Study
  Country: CA (occurrence: CA)
  Receive Date: 20140401
  Receipt Date: 20140519
  Transmission Date: 20141212
  Serious: Yes (Other)
  Sender: FDA-Public Use
  Company Number: CA-JNJFOC-20140315913

PATIENT
  Age: 49 Year
  Sex: Female
  Weight: 99 kg

DRUGS (3)
  1. REMICADE [Suspect]
     Indication: PSORIASIS
     Route: 042
     Dates: start: 20140318
  2. REMICADE [Suspect]
     Indication: PSORIASIS
     Route: 042
     Dates: start: 20131009
  3. TYLENOL WITH CODEINE [Concomitant]
     Indication: ARTHRITIS
     Route: 065

REACTIONS (1)
  - Arthralgia [Recovered/Resolved]
